FAERS Safety Report 6293839-1 (Version None)
Quarter: 2009Q3

REPORT INFORMATION
  Report Type: 
  Country: None (occurrence: None)
  Receive Date: 20090803
  Receipt Date: 20090724
  Transmission Date: 20100115
  Serious: Yes (Hospitalization, Other)
  Sender: FDA-Public Use
  Company Number: GB-AMGEN-US351039

PATIENT
  Sex: Female

DRUGS (2)
  1. ENBREL [Suspect]
     Indication: ANKYLOSING SPONDYLITIS
     Dosage: 50 MG (FREQUENCY UNKNOWN)
     Dates: start: 20090101
  2. HUMIRA [Suspect]
     Indication: ANKYLOSING SPONDYLITIS
     Dosage: UNKNOWN
     Dates: start: 20071001, end: 20080101

REACTIONS (2)
  - LYMPHOMA [None]
  - TUBERCULOSIS [None]
